FAERS Safety Report 6268274-2 (Version None)
Quarter: 2009Q3

REPORT INFORMATION
  Report Type: 
  Country: None (occurrence: None)
  Receive Date: 20090715
  Receipt Date: 20090706
  Transmission Date: 20100115
  Serious: Yes (Hospitalization)
  Sender: FDA-Public Use
  Company Number: CA-JNJFOC-20090701938

PATIENT
  Sex: Male
  Weight: 116 kg

DRUGS (1)
  1. REMICADE [Suspect]
     Indication: CROHN'S DISEASE
     Route: 042

REACTIONS (4)
  - CENTRAL LINE INFECTION [None]
  - EAR HAEMORRHAGE [None]
  - EAR PAIN [None]
  - TINNITUS [None]
